FAERS Safety Report 7638800-7 (Version None)
Quarter: 2011Q3

REPORT INFORMATION
  Report Type: 
  Country: None (occurrence: None)
  Receive Date: 20110721
  Receipt Date: 20110707
  Transmission Date: 20111222
  Serious: Yes (Hospitalization)
  Sender: FDA-Public Use
  Company Number: US-2011-10153

PATIENT
  Age: 61 Year
  Sex: Male

DRUGS (20)
  1. DEXAMETHASONE [Concomitant]
  2. ACEBUTOLOL HCL (ACEBUTOLOL HYDROCHLORIDE) [Concomitant]
  3. SERTRALINE HCL (SERTRALINE HYDROCHLORIDE) [Concomitant]
  4. BENADRYL MAALOX LIDOCAL [Concomitant]
  5. ETOPOSIDE [Concomitant]
  6. ESOMEPRAZOLE (ESOMEPRAZOLE) [Concomitant]
  7. CIPROFLOXACIN (CIPROFLOXACIN HYDROCHLORIDE) [Concomitant]
  8. ONDANSETRON [Concomitant]
  9. FLUCONAZOLE [Concomitant]
  10. OXYCODONE HCL [Concomitant]
  11. LORAZEPAM [Concomitant]
  12. VANCOMYCIN [Concomitant]
  13. ACETAMINOPHEN [Concomitant]
  14. HALOPERIDOL [Concomitant]
  15. BUSULFAN [Suspect]
     Indication: STEM CELL TRANSPLANT
     Dosage: 0.8 MG/KG 362 MG/KG
     Dates: start: 20110308, end: 20110311
  16. BUSULFAN [Suspect]
     Indication: STEM CELL TRANSPLANT
     Dosage: 0.8 MG/KG 362 MG/KG
     Dates: start: 20110302, end: 20110302
  17. ACYCLOVIR [Concomitant]
  18. LOSARTAN POTASSIUM [Concomitant]
  19. LIDOCAINE (LIDOCAINE HYDROCHLORIDE) [Concomitant]
  20. CYCLOPHOSPHAMIDE [Concomitant]

REACTIONS (10)
  - SEPSIS [None]
  - HYPOTENSION [None]
  - HYPERNATRAEMIA [None]
  - PULMONARY OEDEMA [None]
  - SMALL INTESTINAL OBSTRUCTION [None]
  - ATRIAL FIBRILLATION [None]
  - NEPHROPATHY TOXIC [None]
  - RENAL FAILURE ACUTE [None]
  - POST PROCEDURAL COMPLICATION [None]
  - RENAL TUBULAR NECROSIS [None]
